FAERS Safety Report 15878500 (Version 1)
Quarter: 2019Q1

REPORT INFORMATION
  Report Type: Spontaneous
  Country: US (occurrence: US)
  Receive Date: 20190128
  Receipt Date: 20190128
  Transmission Date: 20190417
  Serious: Yes (Hospitalization)
  Sender: FDA-Public Use
  Company Number: US-EMCURE PHARMACEUTICALS LTD-2019-EPL-0034

PATIENT
  Age: 64 Year
  Sex: Male

DRUGS (4)
  1. GEMCITABINE HYDROCHLORIDE. [Suspect]
     Active Substance: GEMCITABINE HYDROCHLORIDE
     Indication: NON-HODGKIN^S LYMPHOMA
  2. RITUXIMAB. [Concomitant]
     Active Substance: RITUXIMAB
  3. CISPLATIN. [Suspect]
     Active Substance: CISPLATIN
  4. DEXAMETHASONE. [Concomitant]
     Active Substance: DEXAMETHASONE

REACTIONS (3)
  - Thrombocytopenia [Recovered/Resolved]
  - Off label use [Unknown]
  - Embolism arterial [Recovered/Resolved]
